FAERS Safety Report 9891052 (Version 1)
Quarter: 2014Q1

REPORT INFORMATION
  Report Type: Spontaneous
  Country: US (occurrence: None)
  Receive Date: 20140211
  Receipt Date: 20140211
  Transmission Date: 20141002
  Serious: No
  Sender: FDA-Public Use
  Company Number: None

PATIENT
  Age: 84 Year
  Sex: Male
  Weight: 81.65 kg

DRUGS (16)
  1. CLONAZEPAN [Suspect]
     Indication: SLEEP APNOEA SYNDROME
     Dosage: 0.5 MG 1 TO 2 PILLS NIGHT BEDTIME MOUTH W/WATER
     Route: 048
     Dates: start: 20130830, end: 20131205
  2. METOPROLOL [Concomitant]
  3. MELATONIN [Concomitant]
  4. PRVACID [Concomitant]
  5. PRAVACHOL [Concomitant]
  6. ZETIA [Concomitant]
  7. CAPZASIN +SALONPAS [Concomitant]
  8. ALLOPURINAL [Concomitant]
  9. COUMADIN [Concomitant]
  10. AMLODIPINE [Concomitant]
  11. ASPIRIN [Concomitant]
  12. MULTI VITAMIN [Concomitant]
  13. D3 2000 IU [Concomitant]
  14. B12 1000IU [Concomitant]
  15. C 1000 IU [Concomitant]
  16. CALCIUM 800 MG + 400 IU D3 [Concomitant]

REACTIONS (3)
  - Rash [None]
  - Pruritus [None]
  - Constipation [None]
